FAERS Safety Report 8144460-1 (Version None)
Quarter: 2012Q1

REPORT INFORMATION
  Report Type: 
  Country: None (occurrence: None)
  Receive Date: 20120217
  Receipt Date: 20120215
  Transmission Date: 20120608
  Serious: No
  Sender: FDA-Public Use
  Company Number: US-TEVA-322933USA

PATIENT
  Sex: Female
  Weight: 63.56 kg

DRUGS (7)
  1. METFORMIN HCL [Concomitant]
  2. PROAIR HFA [Suspect]
     Route: 055
     Dates: start: 20120214, end: 20120215
  3. GLYBURIDE [Concomitant]
  4. PREDNISONE [Concomitant]
  5. COMBIVENT [Concomitant]
  6. SYNTHROID [Concomitant]
  7. GLYBURIDE [Concomitant]

REACTIONS (1)
  - DRUG INEFFECTIVE [None]
